FAERS Safety Report 13135825 (Version 4)
Quarter: 2017Q2

REPORT INFORMATION
  Report Type: Report from Study
  Country: US (occurrence: US)
  Receive Date: 20170120
  Receipt Date: 20170619
  Transmission Date: 20170830
  Serious: Yes (Life-Threatening, Hospitalization)
  Sender: FDA-Public Use
  Company Number: US-ACTELION-A-US2017-148537

PATIENT
  Age: 60 Year
  Sex: Male

DRUGS (1)
  1. TRACLEER [Suspect]
     Active Substance: BOSENTAN
     Indication: PULMONARY ARTERIAL HYPERTENSION
     Dosage: 125 MG, BID
     Route: 048
     Dates: start: 20160119

REACTIONS (5)
  - Oxygen saturation decreased [Unknown]
  - Atrial fibrillation [Not Recovered/Not Resolved]
  - Pulmonary oedema [Unknown]
  - Pneumonia [Unknown]
  - Cardiac failure congestive [Unknown]
